FAERS Safety Report 21685475 (Version 1)
Quarter: 2022Q4

REPORT INFORMATION
  Report Type: Spontaneous
  Country: CN (occurrence: CN)
  Receive Date: 20221206
  Receipt Date: 20221206
  Transmission Date: 20230113
  Serious: Yes (Other)
  Sender: FDA-Public Use
  Company Number: None

PATIENT
  Age: 19 Year
  Sex: Female

DRUGS (6)
  1. MESNA [Suspect]
     Active Substance: MESNA
     Indication: Anal neoplasm
     Dosage: 1200 MG, TID, DILUTED WITH 40 ML 0.9% SODIUM CHLORIDE
     Route: 042
     Dates: start: 20220417, end: 20220417
  2. SODIUM CHLORIDE [Suspect]
     Active Substance: SODIUM CHLORIDE
     Indication: Medication dilution
     Dosage: 40 ML, TID, USED TO DILUTE 1200 MG MESNA
     Route: 041
     Dates: start: 20220417, end: 20220417
  3. SODIUM CHLORIDE [Suspect]
     Active Substance: SODIUM CHLORIDE
     Dosage: 750 ML, QD, USED TO DILUTE 0.1 G ETOPOSIDE
     Route: 041
     Dates: start: 20220417, end: 20220417
  4. SODIUM CHLORIDE [Suspect]
     Active Substance: SODIUM CHLORIDE
     Dosage: 500 ML, QD, USED TO DILUTE 2 G IFOSFAMIDE
     Route: 041
     Dates: start: 20220417, end: 20220417
  5. ETOPOSIDE [Suspect]
     Active Substance: ETOPOSIDE
     Indication: Anal neoplasm
     Dosage: 0.1 G, QD, DILUTED WITH 750 ML 0.9% SODIUM CHLORIDE
     Route: 041
     Dates: start: 20220417, end: 20220417
  6. IFOSFAMIDE [Suspect]
     Active Substance: IFOSFAMIDE
     Indication: Anal neoplasm
     Dosage: 2 G, QD, DILUTED WITH 500 ML 0.9% SODIUM CHLORIDE
     Route: 041
     Dates: start: 20220417, end: 20220417

REACTIONS (1)
  - Myelosuppression [Recovering/Resolving]

NARRATIVE: CASE EVENT DATE: 20220418
